FAERS Safety Report 4431041-6 (Version None)
Quarter: 2004Q3

REPORT INFORMATION
  Report Type: 
  Country: None (occurrence: None)
  Receive Date: 20040824
  Receipt Date: 20030709
  Transmission Date: 20050211
  Serious: No
  Sender: FDA-Public Use
  Company Number: US-BRISTOL-MYERS SQUIBB COMPANY-12321402

PATIENT
  Age: 46 Year
  Sex: Male
  Weight: 82 kg

DRUGS (3)
  1. DOVONEX [Suspect]
     Indication: PSORIASIS
     Route: 061
     Dates: end: 20030701
  2. ULTRAVATE [Suspect]
     Indication: SKIN DISORDER
     Route: 061
  3. LAC-HYDRIN [Suspect]
     Indication: SKIN DISORDER

REACTIONS (1)
  - DRUG INEFFECTIVE [None]
